FAERS Safety Report 5897498-9 (Version None)
Quarter: 2008Q3

REPORT INFORMATION
  Report Type: 
  Country: None (occurrence: None)
  Receive Date: 20080924
  Receipt Date: 20080924
  Transmission Date: 20090109
  Serious: No
  Sender: FDA-Public Use
  Company Number: None

PATIENT
  Age: 54 Year
  Sex: Male

DRUGS (15)
  1. ARAVA [Suspect]
     Dates: start: 20070611, end: 20070723
  2. COMBIVENT [Concomitant]
  3. ATENOLOL [Concomitant]
  4. LISINOPRIL [Concomitant]
  5. DILAUDID [Concomitant]
  6. METRONIDAZOLE [Concomitant]
  7. MINOCYCLINE HCL [Concomitant]
  8. TRAMADOL HCL [Concomitant]
  9. PREDNISONE [Concomitant]
  10. ALDACTONE [Concomitant]
  11. LASIX [Concomitant]
  12. CHOLESTYRAMINE [Concomitant]
  13. PROMETHAZINE [Concomitant]
  14. CALCIUM [Concomitant]
  15. PLAQUENIL [Concomitant]

REACTIONS (4)
  - ASCITES [None]
  - HEPATITIS CHRONIC ACTIVE [None]
  - LIVER INJURY [None]
  - PORTAL HYPERTENSION [None]
